FAERS Safety Report 9719618 (Version 1)
Quarter: 2013Q4

REPORT INFORMATION
  Report Type: Report from Study
  Country: DE (occurrence: DE)
  Receive Date: 20131128
  Receipt Date: 20131128
  Transmission Date: 20140711
  Serious: Yes (Hospitalization)
  Sender: FDA-Public Use
  Company Number: DE-ROCHE-1307375

PATIENT
  Age: 33 Year
  Sex: Female
  Weight: 68 kg

DRUGS (5)
  1. INTERFERON ALFA-2A [Suspect]
     Indication: CHRONIC HEPATITIS C
     Route: 065
  2. PEGASYS [Suspect]
     Indication: CHRONIC HEPATITIS C
     Route: 058
     Dates: start: 201208
  3. RIBAVIRIN [Suspect]
     Indication: CHRONIC HEPATITIS C
     Route: 048
  4. RIBAVIRIN [Suspect]
     Route: 048
     Dates: start: 201208
  5. TELAPREVIR [Suspect]
     Indication: CHRONIC HEPATITIS C
     Route: 048
     Dates: start: 201208

REACTIONS (15)
  - General physical health deterioration [Recovering/Resolving]
  - Erythema multiforme [Recovering/Resolving]
  - Haemolytic anaemia [Unknown]
  - Stomatitis [Recovered/Resolved]
  - Rash generalised [Recovering/Resolving]
  - Pyrexia [Recovered/Resolved]
  - Pruritus generalised [Recovering/Resolving]
  - Rash [Recovering/Resolving]
  - Vasculitis [Unknown]
  - Anal pruritus [Unknown]
  - Hepatitis C [Unknown]
  - Fatigue [Unknown]
  - Fatigue [Unknown]
  - Leukopenia [Unknown]
  - Thrombocytopenia [Unknown]
